FAERS Safety Report 4802587-3 (Version None)
Quarter: 2005Q4

REPORT INFORMATION
  Report Type: 
  Country: None (occurrence: None)
  Receive Date: 20051011
  Receipt Date: 20050927
  Transmission Date: 20060501
  Serious: Yes (Other)
  Sender: FDA-Public Use
  Company Number: US-2005-020302

PATIENT
  Age: 77 Year
  Sex: Male

DRUGS (1)
  1. BETASERON [Suspect]
     Indication: MULTIPLE SCLEROSIS
     Dosage: 8 MIU, EVERY 2D, SUBCUTANEOUS
     Route: 058
     Dates: start: 19970929, end: 20040924

REACTIONS (4)
  - DROOLING [None]
  - LOSS OF CONSCIOUSNESS [None]
  - POSTURE ABNORMAL [None]
  - PULSE PRESSURE DECREASED [None]
